FAERS Safety Report 24166946 (Version 1)
Quarter: 2024Q3

REPORT INFORMATION
  Report Type: Spontaneous
  Country: GB (occurrence: GB)
  Receive Date: 20240802
  Receipt Date: 20240802
  Transmission Date: 20241017
  Serious: Yes (Hospitalization)
  Sender: ACCORD
  Company Number: None

PATIENT
  Age: 87 Year
  Sex: Female

DRUGS (12)
  1. FUROSEMIDE [Suspect]
     Active Substance: FUROSEMIDE
     Indication: Product used for unknown indication
     Dosage: 20MG ONCE A DAY AS REQUIRED.
     Dates: start: 20240605
  2. SOLIFENACIN [Concomitant]
     Active Substance: SOLIFENACIN
  3. TIOTROPIUM BROMIDE [Concomitant]
     Active Substance: TIOTROPIUM BROMIDE
     Dosage: 2.5 MICROGRAMS / DOSE INHALATION SOLUTION CARTRIDGE CFC FREE
  4. CALCIUM CARBONATE\CHOLECALCIFEROL [Concomitant]
     Active Substance: CALCIUM CARBONATE\CHOLECALCIFEROL
     Dosage: 750 MG / 200 UNIT CAPLETS
  5. SENNA [Concomitant]
     Active Substance: SENNA LEAF\SENNOSIDES\SENNOSIDES A AND B
     Dosage: 7.5MG. 2 AT NIGHT.
  6. SIMVASTATIN [Concomitant]
     Active Substance: SIMVASTATIN
     Dosage: AT NIGHT
  7. RAMIPRIL [Concomitant]
     Active Substance: RAMIPRIL
  8. ALBUTEROL [Concomitant]
     Active Substance: ALBUTEROL
  9. LORAZEPAM [Concomitant]
     Active Substance: LORAZEPAM
     Dosage: 1 MG TABLETS HALF A TABLET TO ONE TO BE TAKEN AT NIGHT WHEN REQUIRED
  10. IBANDRONIC ACID [Concomitant]
     Active Substance: IBANDRONIC ACID
     Dosage: ONE TO BE TAKEN EACH MONTH 1 HOUR BEFORE BREAKFAST
  11. DERMOL [Concomitant]
     Active Substance: BENZALKONIUM CHLORIDE\CHLORHEXIDINE HYDROCHLORIDE\ISOPROPYL MYRISTATE\PARAFFIN
     Dosage: 200 SHOWER EMOLLIENT APPLY TO THE SKIN OR USE AS A SOAP SUBSTITUTE
  12. DOCUSATE [Concomitant]
     Active Substance: DOCUSATE
     Dosage: MORNING AND NIGHT

REACTIONS (2)
  - Vomiting [Unknown]
  - Fall [Unknown]
